FAERS Safety Report 9278162 (Version 2)
Quarter: 2013Q4

REPORT INFORMATION
  Report Type: Spontaneous
  Country: IT (occurrence: IT)
  Receive Date: 20130508
  Receipt Date: 20131014
  Transmission Date: 20140711
  Serious: Yes (Other)
  Sender: FDA-Public Use
  Company Number: IT-PFIZER INC-2013140741

PATIENT
  Age: 49 Year
  Sex: Female

DRUGS (3)
  1. CAMPTO [Suspect]
     Indication: RECTAL CANCER
     Dosage: 230 MG, CYCLIC
     Route: 042
     Dates: start: 20120712
  2. FLUOROURACIL [Suspect]
     Indication: RECTAL CANCER
     Dosage: 3888 MG, CYCLIC
     Route: 042
     Dates: start: 20120712
  3. ERBITUX [Suspect]
     Indication: RECTAL CANCER
     Dosage: 600 MG, CYCLIC
     Route: 042
     Dates: start: 20120712

REACTIONS (1)
  - Vaginal haemorrhage [Unknown]
